FAERS Safety Report 19024326 (Version 1)
Quarter: 2021Q1

REPORT INFORMATION
  Report Type: Spontaneous
  Country: US (occurrence: US)
  Receive Date: 20210317
  Receipt Date: 20210317
  Transmission Date: 20210420
  Serious: Yes (Life-Threatening, Hospitalization, Other)
  Sender: FDA-Public Use
  Company Number: US-BAXTER-2021BAX004991

PATIENT
  Age: 41 Year
  Sex: Female

DRUGS (4)
  1. ONDANSETRON INJECTION, USP?SINGLE DOSE [Suspect]
     Active Substance: ONDANSETRON
     Indication: VOMITING
  2. ONDANSETRON INJECTION, USP?SINGLE DOSE [Suspect]
     Active Substance: ONDANSETRON
     Indication: NAUSEA
     Route: 042
  3. KETOROLAC [Concomitant]
     Active Substance: KETOROLAC TROMETHAMINE
     Indication: VOMITING
     Route: 042
  4. KETOROLAC [Concomitant]
     Active Substance: KETOROLAC TROMETHAMINE
     Indication: NAUSEA

REACTIONS (7)
  - Cardiac arrest [Recovering/Resolving]
  - Hypokalaemia [Recovering/Resolving]
  - Torsade de pointes [Recovering/Resolving]
  - Electrocardiogram QT prolonged [Recovering/Resolving]
  - Ventricular extrasystoles [Recovering/Resolving]
  - Pancreatitis acute [Recovering/Resolving]
  - Hypomagnesaemia [Recovering/Resolving]
